FAERS Safety Report 11230579 (Version 4)
Quarter: 2017Q1

REPORT INFORMATION
  Report Type: Report from Study
  Country: CA (occurrence: CA)
  Receive Date: 20150701
  Receipt Date: 20170124
  Transmission Date: 20170428
  Serious: Yes (Other)
  Sender: FDA-Public Use
  Company Number: CA-ROCHE-1600621

PATIENT
  Age: 79 Year
  Sex: Male

DRUGS (4)
  1. ESBRIET [Suspect]
     Active Substance: PIRFENIDONE
     Route: 048
     Dates: start: 2015
  2. ESBRIET [Suspect]
     Active Substance: PIRFENIDONE
     Indication: IDIOPATHIC PULMONARY FIBROSIS
     Route: 048
     Dates: start: 20150427, end: 20150620
  3. VENTOLIN [Concomitant]
     Active Substance: ALBUTEROL SULFATE
  4. ESBRIET [Suspect]
     Active Substance: PIRFENIDONE
     Route: 048
     Dates: start: 2015

REACTIONS (4)
  - Swelling face [Recovered/Resolved with Sequelae]
  - Solar dermatitis [Recovered/Resolved with Sequelae]
  - Rash [Recovered/Resolved with Sequelae]
  - Pain [Recovered/Resolved]

NARRATIVE: CASE EVENT DATE: 201506
